FAERS Safety Report 21004139 (Version 1)
Quarter: 2022Q2

REPORT INFORMATION
  Report Type: Spontaneous
  Country: US (occurrence: US)
  Receive Date: 20220624
  Receipt Date: 20220624
  Transmission Date: 20220720
  Serious: No
  Sender: FDA-Public Use
  Company Number: US-AVEO ONCOLOGY-2022-AVEO-US000168

PATIENT

DRUGS (4)
  1. FOTIVDA [Suspect]
     Active Substance: TIVOZANIB HYDROCHLORIDE
     Indication: Renal cell carcinoma
     Dosage: 0.89 MG, DAILY FOR 21 DAYS ON, 7 DAYS OFF
     Route: 048
     Dates: start: 20220222
  2. PROPRANOLOL [Concomitant]
     Active Substance: PROPRANOLOL HYDROCHLORIDE
  3. LISINOPRIL [Concomitant]
     Active Substance: LISINOPRIL
  4. NIFEDIPINE [Concomitant]
     Active Substance: NIFEDIPINE

REACTIONS (5)
  - Fatigue [Unknown]
  - Tremor [Unknown]
  - Confusional state [Unknown]
  - Mental impairment [Unknown]
  - Nervousness [Unknown]
